FAERS Safety Report 8813335 (Version 1)
Quarter: 2012Q4

REPORT INFORMATION
  Report Type: 
  Country: US (occurrence: US)
  Receive Date: 20120927
  Receipt Date: 20120927
  Transmission Date: 20130627
  Serious: No
  Sender: FDA-Public Use
  Company Number: US-AMGEN-USASP2012035509

PATIENT
  Sex: Female
  Weight: 61.68 kg

DRUGS (9)
  1. PROLIA [Suspect]
     Indication: OSTEOPOROSIS POSTMENOPAUSAL
     Dosage: 60 mg, q6mo
     Route: 058
     Dates: start: 20120507
  2. RANITIDINE [Concomitant]
     Dosage: 150 mg, bid
  3. ETIDRONATE [Concomitant]
     Dosage: 400 mg, qd
  4. THYROID [Concomitant]
     Dosage: 90 mg, qd
  5. ASPIRIN [Concomitant]
     Dosage: 81 mg, prn
  6. ZOLPIDEM [Concomitant]
     Dosage: 5 mg, prn
  7. CARVEDILOL [Concomitant]
     Dosage: 3.125 mg, qd
  8. NITROSTAT [Concomitant]
     Dosage: 0.4 mg, prn
  9. COREG [Concomitant]
     Dosage: UNK

REACTIONS (8)
  - Pollakiuria [Not Recovered/Not Resolved]
  - Joint swelling [Not Recovered/Not Resolved]
  - Abdominal pain [Unknown]
  - Oedema peripheral [Unknown]
  - Back pain [Not Recovered/Not Resolved]
  - Myalgia [Unknown]
  - Constipation [Not Recovered/Not Resolved]
  - Pain in extremity [Unknown]
